FAERS Safety Report 7054177-2 (Version None)
Quarter: 2010Q4

REPORT INFORMATION
  Report Type: 
  Country: None (occurrence: None)
  Receive Date: 20101020
  Receipt Date: 20101012
  Transmission Date: 20110411
  Serious: Yes (Hospitalization)
  Sender: FDA-Public Use
  Company Number: FR-EISAI INC.-E2020-07698-SPO-FR

PATIENT
  Sex: Female

DRUGS (13)
  1. ARICEPT [Suspect]
     Route: 048
     Dates: start: 20050101, end: 20100713
  2. DEROXAT [Suspect]
     Indication: ANXIETY DISORDER
     Dosage: 20 MG DAILY
     Route: 048
     Dates: start: 20100501, end: 20100713
  3. LEVOTHYROXINE SODIUM [Suspect]
     Indication: PRODUCT USED FOR UNKNOWN INDICATION
     Dosage: 50 MCG DAILY
     Route: 048
     Dates: end: 20100713
  4. ATARAX [Suspect]
     Indication: PRODUCT USED FOR UNKNOWN INDICATION
     Dosage: 25 MG DAILY
     Route: 048
     Dates: end: 20100713
  5. STILNOX [Suspect]
     Indication: PRODUCT USED FOR UNKNOWN INDICATION
     Dosage: 10 MG DAILY
     Route: 048
     Dates: end: 20100713
  6. DIGOXINE [Suspect]
     Indication: PRODUCT USED FOR UNKNOWN INDICATION
     Dosage: 0.25 MG DAILY
     Route: 048
     Dates: end: 20100713
  7. ALFUZOSIN HCL [Concomitant]
  8. URAPIDIL [Concomitant]
  9. LASIX [Concomitant]
  10. INOFER [Concomitant]
  11. SPASFON [Concomitant]
  12. KARDEGIC [Concomitant]
  13. CANDESARTAN CILEXETIL [Concomitant]

REACTIONS (4)
  - HYPERKALAEMIA [None]
  - HYPERTONIA [None]
  - TREMOR [None]
  - URINARY RETENTION [None]
